FAERS Safety Report 9219568 (Version 1)
Quarter: 2013Q2

REPORT INFORMATION
  Report Type: Spontaneous
  Country: US (occurrence: None)
  Receive Date: 20130408
  Receipt Date: 20130408
  Transmission Date: 20140414
  Serious: Yes (Hospitalization, Other)
  Sender: FDA-Public Use
  Company Number: None

PATIENT
  Age: 91 Year
  Sex: Female
  Weight: 72.58 kg

DRUGS (1)
  1. EYLEA [Suspect]
     Indication: MACULAR DEGENERATION
     Dosage: 2 MG  4 WEEKS
     Dates: start: 20130225, end: 20130225

REACTIONS (1)
  - Myocardial infarction [None]
